FAERS Safety Report 6860560-8 (Version None)
Quarter: 2010Q3

REPORT INFORMATION
  Report Type: 
  Country: None (occurrence: None)
  Receive Date: 20100720
  Receipt Date: 20100712
  Transmission Date: 20110219
  Serious: Yes (Hospitalization)
  Sender: FDA-Public Use
  Company Number: B0659848A

PATIENT
  Sex: Female

DRUGS (5)
  1. ARIXTRA [Suspect]
     Indication: THROMBOSIS PROPHYLAXIS
     Dosage: 1.5MG PER DAY
     Route: 058
     Dates: start: 20100429, end: 20100505
  2. WARFARIN SODIUM [Concomitant]
     Dosage: 1.5MG PER DAY
     Route: 048
     Dates: start: 20100430
  3. PLETAL [Concomitant]
     Dosage: 200MG PER DAY
     Route: 048
     Dates: start: 20100430
  4. ASPIRIN [Concomitant]
     Dosage: 100MG PER DAY
     Route: 048
     Dates: start: 20100430
  5. HEPARIN CALCIUM [Concomitant]
     Indication: THROMBOSIS PROPHYLAXIS
     Dosage: 1000IU PER DAY
     Dates: start: 20100419, end: 20100427

REACTIONS (3)
  - HAEMOGLOBIN DECREASED [None]
  - HAEMORRHAGE [None]
  - RENAL IMPAIRMENT [None]
